FAERS Safety Report 17476085 (Version 2)
Quarter: 2020Q1

REPORT INFORMATION
  Report Type: Report from Study
  Country: CL (occurrence: CL)
  Receive Date: 20200228
  Receipt Date: 20200316
  Transmission Date: 20200409
  Serious: Yes (Hospitalization)
  Sender: FDA-Public Use
  Company Number: CL-ROCHE-2556588

PATIENT
  Age: 74 Year
  Sex: Male
  Weight: 69.6 kg

DRUGS (6)
  1. METOCLOPRAMIDE. [Concomitant]
     Active Substance: METOCLOPRAMIDE
     Indication: NAUSEA
     Route: 048
     Dates: start: 20191218
  2. ATEZOLIZUMAB. [Suspect]
     Active Substance: ATEZOLIZUMAB
     Indication: NON-SMALL CELL LUNG CANCER
     Dosage: 30/JAN/2020, AT 11 11  (1800 MG) DOSE OF LAST ATEZOLIZUMAB IV ADMINISTERED?PRIOR TO SAE ONSET
     Route: 042
     Dates: start: 20200130
  3. IPRATROPIUM BROMIDE. [Concomitant]
     Active Substance: IPRATROPIUM BROMIDE
     Indication: DYSPNOEA
     Dosage: 2 PUFF, INHALE
     Route: 065
     Dates: start: 20191218
  4. ATEZOLIZUMAB. [Suspect]
     Active Substance: ATEZOLIZUMAB
     Indication: NON-SMALL CELL LUNG CANCER
     Dosage: 09/JAN/2020, AT 11 06, DOSE 1200 MG, MOST RECENT DOSE OF ATEZOLIZUMAB SC FOR CO-MIX PRIOR TO SAE ONS
     Route: 058
     Dates: start: 20191128
  5. ACETYLCYSTEINE. [Concomitant]
     Active Substance: ACETYLCYSTEINE
     Indication: FATIGUE
     Route: 048
     Dates: start: 20191218
  6. MOXIFLOXACINO [MOXIFLOXACIN] [Concomitant]
     Indication: BRONCHITIS
     Route: 048
     Dates: start: 20200120, end: 20200128

REACTIONS (1)
  - Respiratory failure [Recovering/Resolving]

NARRATIVE: CASE EVENT DATE: 20200221
